FAERS Safety Report 11055489 (Version 1)
Quarter: 2015Q2

REPORT INFORMATION
  Report Type: Spontaneous
  Country: US (occurrence: US)
  Receive Date: 20150422
  Receipt Date: 20150422
  Transmission Date: 20150821
  Serious: No
  Sender: FDA-Public Use
  Company Number: US-PFIZER INC-2015133393

PATIENT
  Age: 44 Year
  Sex: Female
  Weight: 72.56 kg

DRUGS (1)
  1. XANAX [Suspect]
     Active Substance: ALPRAZOLAM
     Dosage: 0.25 MG, 1X/DAY, (AT BED TIME)
     Route: 048
     Dates: start: 2007, end: 2013

REACTIONS (5)
  - Panic attack [Unknown]
  - Anxiety [Unknown]
  - Drug screen negative [Unknown]
  - Sleep disorder [Unknown]
  - Irritability [Unknown]
